FAERS Safety Report 24321499 (Version 3)
Quarter: 2024Q4

REPORT INFORMATION
  Report Type: Spontaneous
  Country: CA (occurrence: CA)
  Receive Date: 20240916
  Receipt Date: 20241111
  Transmission Date: 20250114
  Serious: Yes (Other)
  Sender: CELLTRION
  Company Number: CA-PFIZER INC-202400212894

PATIENT

DRUGS (4)
  1. INFLECTRA [Suspect]
     Active Substance: INFLIXIMAB-DYYB
     Indication: Colitis ulcerative
     Dosage: 500 MG, AT Q 0, 2, 6 WEEKS THEN EVERY 6 WEEKS
     Route: 042
     Dates: start: 20240726, end: 20240726
  2. INFLECTRA [Suspect]
     Active Substance: INFLIXIMAB-DYYB
     Dosage: 500 MG, EVERY 2 WEEKS (W2)
     Route: 042
     Dates: start: 20240809, end: 20240809
  3. INFLECTRA [Suspect]
     Active Substance: INFLIXIMAB-DYYB
     Dosage: 500 MG, AFTER 3 WEEKS AND 6 DAYS (WEEK 6)
     Route: 042
     Dates: start: 20240905
  4. INFLECTRA [Suspect]
     Active Substance: INFLIXIMAB-DYYB
     Dosage: 500 MG, 6 WEEKS (500 MG, AT Q 0, 2, 6 WEEKS THEN EVERY 6 WEEKS)
     Route: 042
     Dates: start: 20241018

REACTIONS (7)
  - Endodontic procedure [Unknown]
  - Pruritus [Recovered/Resolved]
  - Condition aggravated [Not Recovered/Not Resolved]
  - Off label use [Unknown]
  - Off label use [Unknown]
  - Off label use [Unknown]
  - Intentional product use issue [Unknown]

NARRATIVE: CASE EVENT DATE: 20240101
